FAERS Safety Report 5245470-4 (Version None)
Quarter: 2007Q1

REPORT INFORMATION
  Report Type: 
  Country: None (occurrence: None)
  Receive Date: 20070223
  Receipt Date: 20070216
  Transmission Date: 20070707
  Serious: Yes (Hospitalization)
  Sender: FDA-Public Use
  Company Number: HU-ELI_LILLY_AND_COMPANY-HU200702003666

PATIENT
  Age: 48 Year
  Sex: Female
  Weight: 64 kg

DRUGS (8)
  1. GEMZAR [Suspect]
     Indication: LUNG NEOPLASM MALIGNANT
     Dosage: 200 MG, OTHER
     Route: 042
  2. GLYCERIN [Concomitant]
     Dosage: 1 DL, 2/D
  3. CERUCAL [Concomitant]
     Dosage: 1 D/F, 3/D
  4. FRAXIPARINE [Concomitant]
     Dosage: 3 ML, DAILY (1/D)
  5. MEDROL [Concomitant]
     Dosage: 16 MG, AS PRESERVER DOSAGE
  6. QUAMATEL [Concomitant]
     Dosage: 40 MG, EACH EVENING
  7. SPIRIVA [Concomitant]
     Dosage: 1 D/F, DAILY (1/D)
     Route: 055
  8. TEGRETOL [Concomitant]
     Dosage: 200 MG, 2/D

REACTIONS (4)
  - BRONCHITIS CHRONIC [None]
  - METASTASES TO CENTRAL NERVOUS SYSTEM [None]
  - NEPHROLITHIASIS [None]
  - THROMBOPHLEBITIS SUPERFICIAL [None]
